FAERS Safety Report 10636122 (Version 1)
Quarter: 2014Q4

REPORT INFORMATION
  Report Type: Spontaneous
  Country: US (occurrence: US)
  Receive Date: 20141205
  Receipt Date: 20141205
  Transmission Date: 20150529
  Serious: Yes (Hospitalization, Other)
  Sender: FDA-Public Use
  Company Number: US-GLAXOSMITHKLINE-US2014030135

PATIENT
  Age: 63 Year
  Sex: Female

DRUGS (5)
  1. VENTOLIN HFA [Suspect]
     Active Substance: ALBUTEROL SULFATE
     Indication: DYSPNOEA
     Dosage: 4 PUFF(S), PRN
     Route: 055
     Dates: start: 2011
  2. NEBULIZER (NAME UNKNOWN) [Concomitant]
  3. XANAX [Concomitant]
     Active Substance: ALPRAZOLAM
  4. ADVAIR DISKUS [Suspect]
     Active Substance: FLUTICASONE PROPIONATE\SALMETEROL XINAFOATE
     Indication: CHRONIC OBSTRUCTIVE PULMONARY DISEASE
     Dosage: 1 PUFF(S), BID
     Route: 055
     Dates: start: 2012
  5. SINGULAIR [Concomitant]
     Active Substance: MONTELUKAST SODIUM

REACTIONS (2)
  - Dyspnoea [Unknown]
  - Aspiration [Recovered/Resolved]

NARRATIVE: CASE EVENT DATE: 20140824
